FAERS Safety Report 12709423 (Version 1)
Quarter: 2016Q3

REPORT INFORMATION
  Report Type: Spontaneous
  Country: US (occurrence: None)
  Receive Date: 20160901
  Receipt Date: 20160901
  Transmission Date: 20161109
  Serious: Yes (Hospitalization)
  Sender: FDA-Public Use
  Company Number: None

PATIENT
  Age: 74 Year
  Sex: Male
  Weight: 175.9 kg

DRUGS (2)
  1. WARFARIN [Suspect]
     Active Substance: WARFARIN
     Dosage: MG PO
     Route: 048
     Dates: start: 20030102
  2. ENOXAPARIN [Suspect]
     Active Substance: ENOXAPARIN
     Indication: PULMONARY EMBOLISM
     Route: 058
     Dates: start: 20160805, end: 20160820

REACTIONS (5)
  - Melaena [None]
  - Urinary tract infection [None]
  - Haemoglobin decreased [None]
  - International normalised ratio decreased [None]
  - Gastric haemorrhage [None]

NARRATIVE: CASE EVENT DATE: 20160820
